FAERS Safety Report 5684626-3 (Version None)
Quarter: 2008Q1

REPORT INFORMATION
  Report Type: 
  Country: None (occurrence: None)
  Receive Date: 20080328
  Receipt Date: 20070509
  Transmission Date: 20080703
  Serious: Yes (Other)
  Sender: FDA-Public Use
  Company Number: US-BRISTOL-MYERS SQUIBB COMPANY-13751318

PATIENT
  Age: 79 Year
  Sex: Male

DRUGS (6)
  1. ERBITUX [Suspect]
     Indication: RECTAL CANCER
     Route: 042
     Dates: start: 20061115, end: 20070411
  2. CPT-11 [Concomitant]
  3. KYTRIL [Concomitant]
  4. DECADRON [Concomitant]
  5. TYLENOL (CAPLET) [Concomitant]
  6. BENADRYL [Concomitant]

REACTIONS (2)
  - DIARRHOEA [None]
  - WEIGHT DECREASED [None]
